FAERS Safety Report 8796116 (Version 1)
Quarter: 2012Q4

REPORT INFORMATION
  Report Type: Report from Study
  Country: US (occurrence: US)
  Receive Date: 20120919
  Receipt Date: 20120919
  Transmission Date: 20130627
  Serious: Yes (Life-Threatening, Hospitalization, Disabling)
  Sender: FDA-Public Use
  Company Number: US-BRISTOL-MYERS SQUIBB COMPANY-16945115

PATIENT
  Age: 56 Year
  Sex: Female

DRUGS (5)
  1. ATAZANAVIR [Suspect]
     Indication: HIV INFECTION
     Dosage: Last dose on 25Sep10
     Route: 048
     Dates: start: 20100420
  2. RITONAVIR [Suspect]
     Indication: HIV INFECTION
     Dosage: Last dose on 25Sep10,Intd on 28Sep10
     Route: 048
     Dates: start: 20100420
  3. COUMADIN [Suspect]
     Indication: PULMONARY EMBOLISM
     Dosage: Last dose on 25Sep10
     Route: 048
  4. SPIRIVA [Concomitant]
     Dates: start: 20100518
  5. DILTIAZEM HCL [Concomitant]
     Dates: start: 20100215

REACTIONS (2)
  - Fall [Unknown]
  - Metastases to central nervous system [Not Recovered/Not Resolved]
